FAERS Safety Report 9055453 (Version 1)
Quarter: 2013Q1

REPORT INFORMATION
  Report Type: Spontaneous
  Country: GB (occurrence: GB)
  Receive Date: 20130206
  Receipt Date: 20130206
  Transmission Date: 20140127
  Serious: Yes (Other)
  Sender: FDA-Public Use
  Company Number: GB-JNJFOC-20130201124

PATIENT
  Age: 86 Year
  Sex: Female
  Weight: 60 kg

DRUGS (19)
  1. XARELTO [Suspect]
     Indication: ATRIAL FIBRILLATION
     Route: 048
  2. XARELTO [Suspect]
     Indication: ATRIAL FIBRILLATION
     Route: 048
     Dates: start: 20121107, end: 20130104
  3. XARELTO [Suspect]
     Indication: CEREBROVASCULAR ACCIDENT PROPHYLAXIS
     Route: 048
     Dates: start: 20121107, end: 20130104
  4. XARELTO [Suspect]
     Indication: CEREBROVASCULAR ACCIDENT PROPHYLAXIS
     Route: 048
  5. NAPROXEN [Concomitant]
  6. BISOPROLOL [Concomitant]
  7. DIPROBASE [Concomitant]
  8. FUROSEMIDE [Concomitant]
  9. HYDROXOCOBALAMIN [Concomitant]
  10. ISPAGHULA HUSK [Concomitant]
  11. LANSOPRAZOLE [Concomitant]
  12. LAXIDO [Concomitant]
  13. PREGABALIN [Concomitant]
  14. RAMIPRIL [Concomitant]
  15. RHINOCORT AQUA [Concomitant]
  16. SIMVADOR [Concomitant]
  17. TYLEX [Concomitant]
  18. ALLOPURINOL [Concomitant]
  19. ACETYLSALICYLIC ACID [Concomitant]

REACTIONS (5)
  - Haemoglobin decreased [Not Recovered/Not Resolved]
  - Confusional state [Not Recovered/Not Resolved]
  - Withdrawal syndrome [Unknown]
  - Nausea [Unknown]
  - Faeces discoloured [Unknown]
